FAERS Safety Report 9432246 (Version 2)
Quarter: 2013Q3

REPORT INFORMATION
  Report Type: Report from Study
  Country: BR (occurrence: BR)
  Receive Date: 20130731
  Receipt Date: 20130827
  Transmission Date: 20140515
  Serious: No
  Sender: FDA-Public Use
  Company Number: PHHY2013BR081136

PATIENT
  Sex: Female

DRUGS (4)
  1. DIOVAN HCT [Suspect]
     Indication: HYPERTENSION
     Dosage: 1 DF(80/12.5 MG), AT NIGHT AND IN THE MORNING
  2. DIOVAN HCT [Suspect]
     Dosage: 1 DF (80/12.5 MG), A DAY
     Route: 048
     Dates: start: 201305
  3. COMBIRON [Concomitant]
     Indication: IMMUNE SYSTEM DISORDER
     Dosage: 1 DF, A DAY
     Route: 048
  4. CHEMOTHERAPEUTICS [Concomitant]

REACTIONS (4)
  - Psychiatric symptom [Recovering/Resolving]
  - Chest pain [Recovered/Resolved]
  - Fatigue [Unknown]
  - Sluggishness [Unknown]
